FAERS Safety Report 9127196 (Version 2)
Quarter: 2013Q2

REPORT INFORMATION
  Report Type: Spontaneous
  Country: US (occurrence: US)
  Receive Date: 20130122
  Receipt Date: 20130520
  Transmission Date: 20140414
  Serious: Yes (Hospitalization)
  Sender: FDA-Public Use
  Company Number: US-ENDO PHARMACEUTICALS INC.-PERC20130003

PATIENT
  Sex: Female

DRUGS (4)
  1. PERCOCET 10MG/325MG [Suspect]
     Indication: PAIN
     Dosage: 10/325 MG
     Route: 065
  2. HYDROCODONE/ACETAMINOPHEN 10MG/500MG [Concomitant]
     Indication: PAIN
     Dosage: 10/500 MG
     Route: 048
     Dates: start: 2012
  3. ROXICODONE [Concomitant]
     Indication: PAIN
     Dosage: UNK
     Route: 065
  4. XANAX [Concomitant]
     Indication: PRODUCT USED FOR UNKNOWN INDICATION
     Route: 065

REACTIONS (2)
  - White blood cell count decreased [Recovered/Resolved]
  - Abdominal distension [Recovered/Resolved]
